FAERS Safety Report 6673403-2 (Version None)
Quarter: 2010Q2

REPORT INFORMATION
  Report Type: 
  Country: None (occurrence: None)
  Receive Date: 20100408
  Receipt Date: 20100329
  Transmission Date: 20101027
  Serious: Yes (Other)
  Sender: FDA-Public Use
  Company Number: GB-PFIZER INC-2010039393

PATIENT
  Age: 65 Year
  Sex: Female

DRUGS (14)
  1. DOXAZOSIN MESYLATE [Suspect]
     Dosage: 1 MG, UNK
     Route: 048
  2. ACETYLSALICYLIC ACID [Concomitant]
     Dosage: 75 MG, UNK
  3. AZITHROMYCIN [Concomitant]
     Dosage: 250 MG, UNK
  4. BENDROFLUMETHIAZIDE [Concomitant]
     Dosage: 2.5 MG, UNK
  5. CANDESARTAN [Concomitant]
     Dosage: UNK
  6. EZETIMIBE [Concomitant]
     Dosage: 10 MG, UNK
  7. FLUCYTOSINE [Concomitant]
     Dosage: 250 UG, UNK
     Route: 055
  8. IVABRADINE [Concomitant]
     Dosage: 4 %, UNK
  9. LAMOTRIGINE [Concomitant]
     Dosage: 100 MG, UNK
  10. PILOCARPINE [Concomitant]
     Dosage: UNK
  11. ROSUVASTATIN [Concomitant]
     Dosage: UNK
  12. SODIUM CHLORIDE [Concomitant]
     Dosage: 5 %, UNK
  13. TERBUTALINE [Concomitant]
     Dosage: 500 UG, UNK
     Route: 055
  14. TIOTROPIUM BROMIDE [Concomitant]
     Dosage: UNK
     Route: 055

REACTIONS (1)
  - CONVULSION [None]
